FAERS Safety Report 22523724 (Version 2)
Quarter: 2023Q2

REPORT INFORMATION
  Report Type: Spontaneous
  Country: US (occurrence: US)
  Receive Date: 20230606
  Receipt Date: 20230629
  Transmission Date: 20230722
  Serious: No
  Sender: FDA-Public Use
  Company Number: US-TAKEDA-2023TUS055311

PATIENT
  Sex: Male
  Weight: 102 kg

DRUGS (9)
  1. LIVTENCITY [Suspect]
     Active Substance: MARIBAVIR
     Indication: Cytomegalovirus infection
     Dosage: 400 MILLIGRAM, BID
     Route: 065
     Dates: start: 202305
  2. FUROSEMIDE [Suspect]
     Active Substance: FUROSEMIDE
     Indication: Swelling
     Dosage: 10 MILLIGRAM, QD
     Route: 065
  3. ATORVASTATIN [Concomitant]
     Active Substance: ATORVASTATIN
  4. LEFLUNOMIDE [Concomitant]
     Active Substance: LEFLUNOMIDE
  5. TAMSULOSIN [Concomitant]
     Active Substance: TAMSULOSIN
  6. CARVEDILOL [Concomitant]
     Active Substance: CARVEDILOL
  7. CYCLOSPORINE [Concomitant]
     Active Substance: CYCLOSPORINE
  8. INSULIN NOS [Concomitant]
     Active Substance: INSULIN NOS
  9. JARDIANCE [Concomitant]
     Active Substance: EMPAGLIFLOZIN

REACTIONS (6)
  - Muscular weakness [Unknown]
  - Peripheral swelling [Unknown]
  - Joint swelling [Unknown]
  - Asthenia [Unknown]
  - Haemoglobin decreased [Unknown]
  - Drug ineffective [Unknown]
